FAERS Safety Report 16740667 (Version 1)
Quarter: 2019Q4

REPORT INFORMATION
  Report Type: Spontaneous
  Country: US (occurrence: US)
  Receive Date: 20190824
  Receipt Date: 20190824
  Transmission Date: 20200122
  Serious: Yes (Other)
  Sender: FDA-Public Use
  Company Number: None

PATIENT
  Age: 62 Year
  Sex: Female
  Weight: 76.5 kg

DRUGS (26)
  1. CIPRO [Suspect]
     Active Substance: CIPROFLOXACIN HYDROCHLORIDE
     Indication: GASTROINTESTINAL DISORDER
     Dosage: ?          QUANTITY:1 TABLET(S);?
     Route: 048
     Dates: start: 20190629, end: 20190630
  2. ALBUTEROL HFA [Concomitant]
     Active Substance: ALBUTEROL SULFATE
  3. METFORMIN [Concomitant]
     Active Substance: METFORMIN HYDROCHLORIDE
  4. BACK BRACE [Concomitant]
  5. KNEE BRACE [Concomitant]
  6. CARVEDILOL. [Concomitant]
     Active Substance: CARVEDILOL
  7. GABOPENTIN [Concomitant]
  8. PRENATAL VITAMINS [Concomitant]
     Active Substance: VITAMINS
  9. LISINOPRIL. [Concomitant]
     Active Substance: LISINOPRIL
  10. TOPIRAMATE. [Concomitant]
     Active Substance: TOPIRAMATE
  11. VITAMIN C [Concomitant]
     Active Substance: ASCORBIC ACID
  12. METHYL FOLATE [Concomitant]
     Active Substance: LEVOMEFOLATE CALCIUM
  13. BONIVA [Concomitant]
     Active Substance: IBANDRONATE SODIUM
  14. VITAMIN D2 [Concomitant]
     Active Substance: ERGOCALCIFEROL
  15. OXYCODONE [Concomitant]
     Active Substance: OXYCODONE
  16. WRITST BRACE [Concomitant]
  17. BIOTIN [Concomitant]
     Active Substance: BIOTIN
  18. CPAP MACHINE [Concomitant]
  19. BACLOFEN. [Concomitant]
     Active Substance: BACLOFEN
  20. TENS UNIT [Concomitant]
  21. LIPITOR [Concomitant]
     Active Substance: ATORVASTATIN CALCIUM
  22. ZYRTEC [Concomitant]
     Active Substance: CETIRIZINE HYDROCHLORIDE
  23. BENADRYLL [Concomitant]
  24. VIIBRYD [Concomitant]
     Active Substance: VILAZODONE HYDROCHLORIDE
  25. BUPROPION HYDROCHLORIDE SR [Concomitant]
     Active Substance: BUPROPION HYDROCHLORIDE
  26. METHYL B12 [Concomitant]

REACTIONS (9)
  - Nausea [None]
  - Tendon rupture [None]
  - Joint swelling [None]
  - Arthralgia [None]
  - Vomiting [None]
  - Insomnia [None]
  - Tendonitis [None]
  - Hypokinesia [None]
  - Musculoskeletal pain [None]

NARRATIVE: CASE EVENT DATE: 20190630
